FAERS Safety Report 7627597-2 (Version None)
Quarter: 2011Q3

REPORT INFORMATION
  Report Type: 
  Country: None (occurrence: None)
  Receive Date: 20110721
  Receipt Date: 20110609
  Transmission Date: 20111222
  Serious: Yes (Other)
  Sender: FDA-Public Use
  Company Number: JP-PFIZER INC-2011050292

PATIENT
  Sex: Female

DRUGS (6)
  1. LENDEM [Concomitant]
     Indication: INSOMNIA
     Dosage: 0.25 MG, 1X/DAY
     Route: 048
  2. PRAVASTATIN SODIUM [Concomitant]
     Indication: HYPERLIPIDAEMIA
     Dosage: 10 MG, 1X/DAY
     Route: 048
  3. LIPITOR [Concomitant]
     Indication: HYPERLIPIDAEMIA
     Dosage: 5 MG, 1X/DAY
     Route: 048
  4. ALINAMIN F [Concomitant]
     Indication: PARKINSONISM
     Dosage: 75 MG, 1X/DAY
     Route: 048
  5. DEZOLAM [Concomitant]
     Indication: PARKINSONISM
     Dosage: 1 MG, 1X/DAY
     Route: 048
  6. AMLODIPINE [Suspect]
     Indication: HYPERTENSION
     Dosage: 2.5 MG, UNK
     Route: 048
     Dates: end: 20070927

REACTIONS (1)
  - PARKINSONISM [None]
